FAERS Safety Report 10057616 (Version 1)
Quarter: 2014Q2

REPORT INFORMATION
  Report Type: Spontaneous
  Country: FI (occurrence: FI)
  Receive Date: 20140404
  Receipt Date: 20140404
  Transmission Date: 20141212
  Serious: Yes (Other)
  Sender: FDA-Public Use
  Company Number: FI-ROCHE-1372317

PATIENT
  Age: 36 Year
  Sex: Male

DRUGS (9)
  1. CELLCEPT [Suspect]
     Indication: IMMUNOSUPPRESSION
     Route: 065
     Dates: start: 200601, end: 200701
  2. CELLCEPT [Suspect]
     Route: 065
     Dates: start: 201304
  3. CELLCEPT [Suspect]
     Route: 065
     Dates: start: 20130702
  4. MABTHERA [Suspect]
     Indication: IMMUNOSUPPRESSION
     Dosage: FOUR TIMES
     Route: 065
     Dates: start: 200706
  5. PROGRAF [Concomitant]
     Route: 065
     Dates: start: 200601
  6. MEDROL [Concomitant]
     Route: 065
     Dates: start: 200601
  7. CYCLOPHOSPHAMIDE [Concomitant]
     Dosage: TOTAL 4 G DURING 2 MONTHS
     Route: 048
     Dates: start: 200701, end: 200705
  8. SOLIRIS [Concomitant]
     Indication: HAEMOLYTIC URAEMIC SYNDROME
     Dosage: 4 WEEKS
     Route: 065
     Dates: start: 20130702
  9. SOLIRIS [Concomitant]
     Route: 065
     Dates: end: 20140120

REACTIONS (6)
  - Complications of transplanted kidney [Unknown]
  - Pulmonary embolism [Unknown]
  - Pneumonia [Unknown]
  - Respiratory tract infection [Unknown]
  - Drug ineffective [Unknown]
  - Gastroenteritis viral [Unknown]
